FAERS Safety Report 6037193-9 (Version None)
Quarter: 2009Q1

REPORT INFORMATION
  Report Type: 
  Country: None (occurrence: None)
  Receive Date: 20090114
  Receipt Date: 20090106
  Transmission Date: 20090719
  Serious: Yes (Hospitalization)
  Sender: FDA-Public Use
  Company Number: US-BIOGENIDEC-2006BI004006

PATIENT
  Age: 68 Year
  Sex: Female
  Weight: 72 kg

DRUGS (4)
  1. AVONEX [Suspect]
     Indication: MULTIPLE SCLEROSIS
     Route: 030
     Dates: start: 19960501, end: 20050601
  2. AVONEX [Suspect]
     Route: 030
     Dates: start: 20050601
  3. AVONEX [Suspect]
     Route: 030
     Dates: start: 20060201, end: 20060301
  4. AVONEX [Suspect]
     Route: 030

REACTIONS (8)
  - B-CELL LYMPHOMA [None]
  - FACIAL PALSY [None]
  - FATIGUE [None]
  - LYMPHOCYTE COUNT DECREASED [None]
  - MOBILITY DECREASED [None]
  - MUSCLE SPASMS [None]
  - OPTIC NEURITIS [None]
  - URINARY RETENTION [None]
